FAERS Safety Report 7983300-8 (Version None)
Quarter: 2011Q4

REPORT INFORMATION
  Report Type: 
  Country: None (occurrence: None)
  Receive Date: 20111215
  Receipt Date: 20111209
  Transmission Date: 20120403
  Serious: Yes (Hospitalization)
  Sender: FDA-Public Use
  Company Number: CA-ABBOTT-11P-028-0878855-00

PATIENT
  Sex: Female
  Weight: 47 kg

DRUGS (6)
  1. LANSOPRAZOLE [Concomitant]
     Indication: PRODUCT USED FOR UNKNOWN INDICATION
     Route: 048
  2. VITAMIN D [Concomitant]
     Indication: VITAMIN SUPPLEMENTATION
  3. PREDNISONE TAB [Concomitant]
     Indication: PRODUCT USED FOR UNKNOWN INDICATION
  4. HUMIRA [Suspect]
     Indication: CROHN'S DISEASE
     Route: 058
     Dates: start: 20110921
  5. HUMIRA [Suspect]
     Route: 058
     Dates: start: 20111123
  6. MULTI-VITAMINS [Concomitant]
     Indication: VITAMIN SUPPLEMENTATION

REACTIONS (6)
  - CROHN'S DISEASE [None]
  - DRUG INEFFECTIVE [None]
  - UNDERWEIGHT [None]
  - INJECTION SITE PAIN [None]
  - MALNUTRITION [None]
  - BLOOD TEST ABNORMAL [None]
